FAERS Safety Report 8045242 (Version 2)
Quarter: 2012Q4

REPORT INFORMATION
  Report Type: 
  Country: US (occurrence: US)
  Receive Date: 20110720
  Receipt Date: 20121107
  Transmission Date: 20130627
  Serious: Yes (Other)
  Sender: FDA-Public Use
  Company Number: US-JNJFOC-20110607002

PATIENT
  Sex: Male

DRUGS (1)
  1. PRECISE PAIN RELIEVING [Suspect]
     Indication: PAIN
     Route: 061
     Dates: start: 201104, end: 20110527

REACTIONS (8)
  - Nervous system disorder [Unknown]
  - Emotional distress [Unknown]
  - Insomnia [Unknown]
  - Injury [Unknown]
  - Burns second degree [Unknown]
  - Burning sensation [None]
  - Application site pain [None]
  - Application site discomfort [None]
